FAERS Safety Report 21378190 (Version 2)
Quarter: 2022Q3

REPORT INFORMATION
  Report Type: Spontaneous
  Country: US (occurrence: US)
  Receive Date: 20220927
  Receipt Date: 20220927
  Transmission Date: 20221026
  Serious: Yes (Other)
  Sender: FDA-Public Use
  Company Number: US-STRIDES ARCOLAB LIMITED-2022SP012159

PATIENT
  Age: 81 Year
  Sex: Male
  Weight: 70.295 kg

DRUGS (3)
  1. AMOXICILLIN [Interacting]
     Active Substance: AMOXICILLIN
     Indication: Toothache
     Dosage: 500 MILLIGRAM, TID (AMOXICILLIN 500MG CAPSULE)
     Route: 048
     Dates: start: 20220808
  2. AMOXICILLIN [Interacting]
     Active Substance: AMOXICILLIN
     Indication: Gingivitis
  3. COLCHICINE [Interacting]
     Active Substance: COLCHICINE
     Indication: Gout
     Dosage: UNK, TWICE DAILY (BID)
     Route: 065

REACTIONS (3)
  - Pancreatitis [Unknown]
  - Drug interaction [Unknown]
  - Off label use [Unknown]

NARRATIVE: CASE EVENT DATE: 20220808
